FAERS Safety Report 7419359-6 (Version None)
Quarter: 2011Q2

REPORT INFORMATION
  Report Type: 
  Country: None (occurrence: None)
  Receive Date: 20110415
  Receipt Date: 20110406
  Transmission Date: 20111010
  Serious: Yes (Hospitalization, Other)
  Sender: FDA-Public Use
  Company Number: US-MERCK-1101USA01552

PATIENT
  Age: 63 Year
  Sex: Female
  Weight: 80 kg

DRUGS (3)
  1. ALENDRONATE SODIUM [Suspect]
     Indication: OSTEOPOROSIS
     Route: 048
     Dates: start: 20080209, end: 20100821
  2. FOSAMAX [Suspect]
     Indication: OSTEOPOROSIS
     Route: 048
     Dates: start: 19950101, end: 20100115
  3. FOSAMAX [Suspect]
     Indication: OSTEOPENIA
     Route: 048
     Dates: start: 19950101, end: 20100115

REACTIONS (24)
  - FEMUR FRACTURE [None]
  - SPINAL COMPRESSION FRACTURE [None]
  - ARTERIOSCLEROSIS [None]
  - TENDON DISORDER [None]
  - ARTHRITIS [None]
  - CERVICAL SPINAL STENOSIS [None]
  - FALL [None]
  - LOWER LIMB FRACTURE [None]
  - SKELETAL INJURY [None]
  - ASTHENIA [None]
  - SCOLIOSIS [None]
  - ARTHROPATHY [None]
  - PATELLOFEMORAL PAIN SYNDROME [None]
  - ROTATOR CUFF SYNDROME [None]
  - LUMBAR SPINAL STENOSIS [None]
  - VARICOSE VEIN [None]
  - TONSILLAR DISORDER [None]
  - OROPHARYNGEAL PAIN [None]
  - PAIN [None]
  - FACET JOINT SYNDROME [None]
  - APPENDIX DISORDER [None]
  - HYPOTHYROIDISM [None]
  - SPINAL OSTEOARTHRITIS [None]
  - LOW TURNOVER OSTEOPATHY [None]
